FAERS Safety Report 8379821-9 (Version None)
Quarter: 2012Q1

REPORT INFORMATION
  Report Type: 
  Country: None (occurrence: None)
  Receive Date: 20120323
  Receipt Date: 20110714
  Transmission Date: 20120608
  Serious: Yes (Hospitalization, Other)
  Sender: FDA-Public Use
  Company Number: 163-21880-11032642

PATIENT
  Age: 65 Year
  Sex: Female
  Weight: 91.173 kg

DRUGS (15)
  1. OXYCONTIN [Concomitant]
  2. FOLIC ACID [Concomitant]
  3. COUMADIN [Concomitant]
  4. FLEXERIL [Concomitant]
  5. ALLEGRA [Concomitant]
  6. PRILOSEC [Concomitant]
  7. MICRO-K (POTASSIUM CHLORIDE) [Concomitant]
  8. LASIX [Concomitant]
  9. COREG [Concomitant]
  10. REVLIMID [Suspect]
     Indication: MULTIPLE MYELOMA
     Dosage: 25 MG, 1 IN 1 D, PO
     Route: 048
     Dates: start: 20070701
  11. VITAMIN B12 [Concomitant]
  12. LORTAB [Concomitant]
  13. LIDODERM [Concomitant]
  14. NEURONTIN [Concomitant]
  15. OXYCODONE HCL [Concomitant]

REACTIONS (3)
  - PNEUMONIA [None]
  - HERPES ZOSTER [None]
  - PYREXIA [None]
